FAERS Safety Report 6291870-3 (Version None)
Quarter: 2009Q3

REPORT INFORMATION
  Report Type: 
  Country: None (occurrence: None)
  Receive Date: 20090730
  Receipt Date: 20090724
  Transmission Date: 20100115
  Serious: Yes (Other)
  Sender: FDA-Public Use
  Company Number: US-ASTRAZENECA-2009UW21334

PATIENT
  Age: 15 Year
  Sex: Male
  Weight: 66 kg

DRUGS (3)
  1. MERREM [Suspect]
     Indication: BRAIN ABSCESS
     Route: 042
  2. VANCOMYCIN [Concomitant]
  3. KEPPRA [Concomitant]

REACTIONS (4)
  - EOSINOPHILIA [None]
  - PYREXIA [None]
  - RASH [None]
  - TUBULOINTERSTITIAL NEPHRITIS [None]
